FAERS Safety Report 8770414 (Version 1)
Quarter: 2012Q4

REPORT INFORMATION
  Report Type: 
  Country: US (occurrence: US)
  Receive Date: 20120906
  Receipt Date: 20120906
  Transmission Date: 20130627
  Serious: Yes (Other)
  Sender: FDA-Public Use
  Company Number: US-GLAXOSMITHKLINE-A0992137A

PATIENT
  Age: 79 Year
  Sex: Male

DRUGS (2)
  1. ALLI [Suspect]
     Indication: CONSTIPATION
     Route: 048
  2. TASIGNA [Concomitant]
     Indication: LEUKAEMIA

REACTIONS (3)
  - Hepatic enzyme increased [Not Recovered/Not Resolved]
  - Drug administration error [Unknown]
  - Therapeutic response unexpected [Unknown]
